FAERS Safety Report 19585522 (Version 1)
Quarter: 2021Q3

REPORT INFORMATION
  Report Type: Spontaneous
  Country: US (occurrence: US)
  Receive Date: 20210720
  Receipt Date: 20210720
  Transmission Date: 20211014
  Serious: No
  Sender: FDA-Public Use
  Company Number: US-ROCHE-2640046

PATIENT
  Sex: Male

DRUGS (1)
  1. TECENTRIQ [Suspect]
     Active Substance: ATEZOLIZUMAB
     Indication: SMALL CELL LUNG CANCER
     Dosage: ONGOING:YES?INTERVAL 1 MONTHS
     Route: 065
     Dates: start: 201911

REACTIONS (5)
  - Arthralgia [Unknown]
  - Chest pain [Unknown]
  - Muscle spasms [Unknown]
  - Gait disturbance [Unknown]
  - Sensory loss [Unknown]
